FAERS Safety Report 20813454 (Version 1)
Quarter: 2022Q2

REPORT INFORMATION
  Report Type: Spontaneous
  Country: US (occurrence: US)
  Receive Date: 20220511
  Receipt Date: 20220511
  Transmission Date: 20220720
  Serious: No
  Sender: FDA-Public Use
  Company Number: US-VIIV HEALTHCARE LIMITED-US2022073051

PATIENT
  Age: 44 Year
  Sex: Female

DRUGS (2)
  1. RILPIVIRINE [Suspect]
     Active Substance: RILPIVIRINE
     Indication: HIV infection
     Dosage: UNK 400/600MG
     Route: 030
  2. CABOTEGRAVIR [Suspect]
     Active Substance: CABOTEGRAVIR
     Indication: HIV infection
     Dosage: UNK 400/600MG
     Route: 065

REACTIONS (2)
  - Intercepted product administration error [Unknown]
  - Product complaint [Unknown]

NARRATIVE: CASE EVENT DATE: 20220502
